FAERS Safety Report 14573405 (Version 2)
Quarter: 2018Q1

REPORT INFORMATION
  Report Type: Report from Study
  Country: GB (occurrence: GB)
  Receive Date: 20180226
  Receipt Date: 20180302
  Transmission Date: 20180509
  Serious: Yes (Hospitalization, Other)
  Sender: FDA-Public Use
  Company Number: GB-JNJFOC-20180228667

PATIENT
  Age: 47 Year
  Sex: Female
  Weight: 151 kg

DRUGS (13)
  1. DOMPERIDONE [Concomitant]
     Active Substance: DOMPERIDONE
     Route: 065
     Dates: start: 19960501
  2. PREGABALIN. [Concomitant]
     Active Substance: PREGABALIN
     Route: 065
     Dates: start: 20131001
  3. HYDROXYCARBAMIDE [Concomitant]
     Active Substance: HYDROXYUREA
     Route: 065
     Dates: start: 20160707
  4. STELARA [Suspect]
     Active Substance: USTEKINUMAB
     Indication: PSORIASIS
     Route: 058
     Dates: start: 20171121
  5. STELARA [Suspect]
     Active Substance: USTEKINUMAB
     Indication: PSORIASIS
     Route: 058
     Dates: start: 20161214, end: 20170408
  6. EVENING PRIMROSE OIL [Concomitant]
     Active Substance: EVENING PRIMROSE OIL\HERBALS
     Route: 065
     Dates: start: 20070501
  7. FUROSEMIDE. [Concomitant]
     Active Substance: FUROSEMIDE
     Route: 065
     Dates: start: 20151111
  8. SPIRONOLACTONE. [Concomitant]
     Active Substance: SPIRONOLACTONE
     Route: 065
     Dates: start: 20151111
  9. ALCOHOL. [Suspect]
     Active Substance: ALCOHOL
     Indication: PRODUCT USED FOR UNKNOWN INDICATION
     Route: 065
  10. PAROXETINE. [Concomitant]
     Active Substance: PAROXETINE
     Route: 065
     Dates: start: 19960501
  11. LOESTRIN NOS [Concomitant]
     Active Substance: ETHINYL ESTRADIOL\NORETHINDRONE ACETATE
     Route: 065
     Dates: start: 20060601
  12. BACLOFEN. [Concomitant]
     Active Substance: BACLOFEN
     Route: 065
     Dates: start: 20180115
  13. DIAZEPAM. [Concomitant]
     Active Substance: DIAZEPAM
     Route: 065
     Dates: start: 19960501

REACTIONS (3)
  - Hepatitis alcoholic [Recovered/Resolved with Sequelae]
  - Depression [Not Recovered/Not Resolved]
  - Alcohol abuse [Not Recovered/Not Resolved]

NARRATIVE: CASE EVENT DATE: 20171203
